FAERS Safety Report 8402931-4 (Version None)
Quarter: 2012Q2

REPORT INFORMATION
  Report Type: 
  Country: None (occurrence: None)
  Receive Date: 20120601
  Receipt Date: 20120525
  Transmission Date: 20120825
  Serious: Yes (Other)
  Sender: FDA-Public Use
  Company Number: US-GLAXOSMITHKLINE-A0977749A

PATIENT
  Age: 70 Year
  Sex: Male

DRUGS (4)
  1. VITAMIN B + C [Concomitant]
  2. LOSARTAN POTASSIUM [Concomitant]
  3. WARFARIN SODIUM [Concomitant]
  4. LAMICTAL [Suspect]
     Indication: CONVULSION
     Dosage: 250MG PER DAY
     Route: 048
     Dates: start: 20100101

REACTIONS (5)
  - CONVULSION [None]
  - FALL [None]
  - LACERATION [None]
  - LOSS OF CONSCIOUSNESS [None]
  - INCORRECT STORAGE OF DRUG [None]
